FAERS Safety Report 25961181 (Version 2)
Quarter: 2025Q4

REPORT INFORMATION
  Report Type: Spontaneous
  Country: US (occurrence: US)
  Receive Date: 20251027
  Receipt Date: 20251107
  Transmission Date: 20260117
  Serious: No
  Sender: LUPIN
  Company Number: US-LUPIN PHARMACEUTICALS INC.-2025-09519

PATIENT
  Age: 35 Year
  Weight: 81.633 kg

DRUGS (1)
  1. ALBUTEROL SULFATE [Suspect]
     Active Substance: ALBUTEROL SULFATE
     Indication: Asthma
     Dosage: (6 TO 8 PUFFS A DAY)

REACTIONS (4)
  - Wrong technique in product usage process [Unknown]
  - Wrong technique in device usage process [Unknown]
  - Device deposit issue [Unknown]
  - No adverse event [Unknown]
